FAERS Safety Report 8561359 (Version 3)
Quarter: 2013Q2

REPORT INFORMATION
  Report Type: Spontaneous
  Country: US (occurrence: US)
  Receive Date: 20120514
  Receipt Date: 20130411
  Transmission Date: 20140414
  Serious: No
  Sender: FDA-Public Use
  Company Number: US-RB-040140-12

PATIENT
  Age: 37 Year
  Sex: Female

DRUGS (3)
  1. SUBOXONE TABLET [Suspect]
     Indication: DRUG DEPENDENCE
     Route: 060
     Dates: start: 201103, end: 201108
  2. METHADONE [Suspect]
     Indication: DRUG DEPENDENCE
     Dosage: UNKNOWN UNIT DOSE
     Route: 048
     Dates: start: 201108, end: 201108
  3. GENERIC BUPRENORPHINE [Suspect]
     Indication: DRUG DEPENDENCE
     Dosage: UNKNOWN DOSAGE DETAILS
     Route: 060
     Dates: start: 201108, end: 20111119

REACTIONS (4)
  - Exposure during pregnancy [Recovered/Resolved]
  - Substance abuse [Recovered/Resolved]
  - Drug abuse [Recovered/Resolved]
  - Suppressed lactation [Recovered/Resolved]
